FAERS Safety Report 13601742 (Version 2)
Quarter: 2017Q3

REPORT INFORMATION
  Report Type: Spontaneous
  Country: PT (occurrence: PT)
  Receive Date: 20170601
  Receipt Date: 20170704
  Transmission Date: 20171127
  Serious: Yes (Death)
  Sender: FDA-Public Use
  Company Number: PT-ACTELION-A-CH2017-154295

PATIENT
  Sex: Female

DRUGS (1)
  1. VELETRI [Suspect]
     Active Substance: EPOPROSTENOL
     Indication: PRODUCT USED FOR UNKNOWN INDICATION
     Route: 042

REACTIONS (2)
  - Device occlusion [Recovered/Resolved]
  - Disease progression [Fatal]
